FAERS Safety Report 15075123 (Version 1)
Quarter: 2018Q3

REPORT INFORMATION
  Report Type: Spontaneous
  Country: US (occurrence: US)
  Receive Date: 20180627
  Receipt Date: 20180627
  Transmission Date: 20181010
  Serious: No
  Sender: FDA-Public Use
  Company Number: US-SAOL THERAPEUTICS-2017SAO01084

PATIENT
  Age: 61 Year
  Sex: Female
  Weight: 75.74 kg

DRUGS (3)
  1. LIORESAL [Suspect]
     Active Substance: BACLOFEN
     Indication: MUSCLE SPASTICITY
     Route: 037
  2. KIT COMPONENTS (DEVICE) [Suspect]
     Active Substance: DEVICE
  3. LIORESAL [Suspect]
     Active Substance: BACLOFEN
     Indication: MULTIPLE SCLEROSIS
     Dosage: 113.77 ?G, \DAY

REACTIONS (6)
  - Device dislocation [Unknown]
  - Underdose [None]
  - Weight increased [Unknown]
  - Device leakage [Recovered/Resolved]
  - Urinary tract infection [Unknown]
  - Drug dose omission [Recovered/Resolved]

NARRATIVE: CASE EVENT DATE: 20171206
